FAERS Safety Report 25961853 (Version 2)
Quarter: 2025Q4

REPORT INFORMATION
  Report Type: Report from Study
  Country: US (occurrence: US)
  Receive Date: 20251027
  Receipt Date: 20251106
  Transmission Date: 20260117
  Serious: Yes (Life-Threatening, Hospitalization)
  Sender: TEVA
  Company Number: US-TEVA-VS-3384615

PATIENT
  Age: 67 Year
  Sex: Male

DRUGS (6)
  1. FENTANYL [Suspect]
     Active Substance: FENTANYL
     Indication: Intracranial pressure increased
     Dosage: DRIP
     Route: 065
  2. VECURONIUM [Suspect]
     Active Substance: VECURONIUM BROMIDE
     Indication: Intracranial pressure increased
     Dosage: PUSHES
     Route: 065
  3. MIDAZOLAM HYDROCHLORIDE [Suspect]
     Active Substance: MIDAZOLAM HYDROCHLORIDE
     Indication: Intracranial pressure increased
     Dosage: DRIP
     Route: 065
  4. PROPOFOL [Suspect]
     Active Substance: PROPOFOL
     Indication: Intracranial pressure increased
     Dosage: DRIP
     Route: 065
  5. KETAMINE [Suspect]
     Active Substance: KETAMINE
     Indication: Intracranial pressure increased
     Dosage: DRIP
     Route: 065
  6. SODIUM CHLORIDE [Suspect]
     Active Substance: SODIUM CHLORIDE
     Indication: Intracranial pressure increased
     Dosage: DRIP; SEVERAL BOLUSES
     Route: 065

REACTIONS (1)
  - Drug ineffective [Unknown]
